FAERS Safety Report 20216661 (Version 1)
Quarter: 2021Q4

REPORT INFORMATION
  Report Type: Spontaneous
  Country: FR (occurrence: FR)
  Receive Date: 20211222
  Receipt Date: 20211222
  Transmission Date: 20220303
  Serious: Yes (Hospitalization)
  Sender: FDA-Public Use
  Company Number: None

PATIENT
  Age: 35 Year
  Sex: Female

DRUGS (4)
  1. BUPRENORPHINE [Suspect]
     Active Substance: BUPRENORPHINE
     Indication: Pain
     Dosage: 8 MILLIGRAM, QD
     Route: 060
     Dates: end: 20210921
  2. FENTANYL [Suspect]
     Active Substance: FENTANYL
     Indication: Pain
     Dosage: UNK
     Route: 062
     Dates: end: 20210921
  3. MORPHINE [Suspect]
     Active Substance: MORPHINE
     Indication: Pain
     Dosage: 4 MILLIGRAM, QD
     Route: 058
     Dates: end: 20210921
  4. MORPHINE [Suspect]
     Active Substance: MORPHINE
     Dosage: 40 MILLIGRAM, QD
     Route: 042
     Dates: end: 20210921

REACTIONS (2)
  - Drug dependence, antepartum [Recovering/Resolving]
  - Maternal exposure during pregnancy [Unknown]
